FAERS Safety Report 7201974-6 (Version None)
Quarter: 2010Q4

REPORT INFORMATION
  Report Type: 
  Country: None (occurrence: None)
  Receive Date: 20101229
  Receipt Date: 20101217
  Transmission Date: 20110411
  Serious: Yes (Death, Other)
  Sender: FDA-Public Use
  Company Number: US-PURDUE-USA-2010-0060056

PATIENT
  Age: 33 Year
  Sex: Female

DRUGS (3)
  1. OXYCODONE HCL [Suspect]
     Indication: DRUG ABUSE
  2. WELLBUTRIN [Suspect]
     Indication: DRUG ABUSE
  3. METHAMPHETAMINE [Suspect]
     Indication: DRUG ABUSE

REACTIONS (3)
  - ALTERED STATE OF CONSCIOUSNESS [None]
  - DRUG ABUSE [None]
  - HYPOTHERMIA [None]
